FAERS Safety Report 5247680-9 (Version None)
Quarter: 2007Q1

REPORT INFORMATION
  Report Type: 
  Country: None (occurrence: None)
  Receive Date: 20070227
  Receipt Date: 20070220
  Transmission Date: 20070707
  Serious: Yes (Other)
  Sender: FDA-Public Use
  Company Number: GB-AVENTIS-200711162GDDC

PATIENT
  Age: 40 Year
  Sex: Female

DRUGS (4)
  1. LEFLUNOMIDE [Suspect]
     Route: 048
     Dates: start: 20060901, end: 20061205
  2. ACETAMINOPHEN W/ CODEINE [Concomitant]
     Dosage: DOSE: UNK
     Route: 048
     Dates: start: 20060530
  3. IBUPROFEN [Concomitant]
     Route: 048
     Dates: start: 20060901
  4. LANSOPRAZOLE [Concomitant]
     Indication: DYSPEPSIA
     Route: 048
     Dates: start: 20060626

REACTIONS (1)
  - PSORIASIS [None]
